FAERS Safety Report 14261194 (Version 1)
Quarter: 2017Q4

REPORT INFORMATION
  Report Type: Report from Study
  Country: US (occurrence: US)
  Receive Date: 20171208
  Receipt Date: 20171208
  Transmission Date: 20180321
  Serious: Yes (Other)
  Sender: FDA-Public Use
  Company Number: US-TEVA-2017-US-826678

PATIENT

DRUGS (1)
  1. METHOTREXATE. [Suspect]
     Active Substance: METHOTREXATE
     Indication: PSORIASIS
     Dosage: CUMULATIVE DOSE OF MORE THAN 500MG, RECEIVED FOR NOT LESS THAN 90 DAYS
     Route: 065

REACTIONS (2)
  - Condition aggravated [Unknown]
  - Hepatic fibrosis [Unknown]
